FAERS Safety Report 24982938 (Version 1)
Quarter: 2025Q1

REPORT INFORMATION
  Report Type: Report from Study
  Country: US (occurrence: US)
  Receive Date: 20250218
  Receipt Date: 20250218
  Transmission Date: 20250409
  Serious: Yes (Other)
  Sender: JOHNSON AND JOHNSON
  Company Number: US-ABBVIE-6136539

PATIENT
  Sex: Male

DRUGS (1)
  1. IMBRUVICA [Suspect]
     Active Substance: IBRUTINIB
     Indication: Waldenstrom^s macroglobulinaemia
     Dosage: MISSED MAYBE TWO-THREE DOSES DUE TO A DELIVERY DELAY
     Route: 048
     Dates: start: 202209

REACTIONS (3)
  - Parkinson^s disease [Recovering/Resolving]
  - Fatigue [Unknown]
  - Balance disorder [Unknown]
